FAERS Safety Report 21768656 (Version 1)
Quarter: 2022Q4

REPORT INFORMATION
  Report Type: Spontaneous
  Country: NI (occurrence: NI)
  Receive Date: 20221222
  Receipt Date: 20221222
  Transmission Date: 20230113
  Serious: Yes (Hospitalization)
  Sender: FDA-Public Use
  Company Number: NI-LUNDBECK-DKLU3056242

PATIENT
  Sex: Male

DRUGS (1)
  1. SABRIL [Suspect]
     Active Substance: VIGABATRIN
     Indication: Seizure prophylaxis
     Route: 065

REACTIONS (2)
  - Drug withdrawal convulsions [Unknown]
  - Product use issue [Unknown]
